FAERS Safety Report 9357660 (Version 4)
Quarter: 2013Q3

REPORT INFORMATION
  Report Type: Spontaneous
  Country: ES (occurrence: ES)
  Receive Date: 20130620
  Receipt Date: 20130711
  Transmission Date: 20140515
  Serious: Yes (Hospitalization)
  Sender: FDA-Public Use
  Company Number: ES-PFIZER INC-2013183990

PATIENT
  Age: 86 Year
  Sex: Female

DRUGS (6)
  1. TRANGOREX [Suspect]
     Indication: ATRIAL FIBRILLATION
     Dosage: 400 MG, 1X/DAY
     Route: 048
     Dates: start: 20121205, end: 20121208
  2. BISOPROLOL FUMARATE [Interacting]
     Indication: ATRIAL FIBRILLATION
     Dosage: 2.5 MG, 1X/DAY
     Route: 048
     Dates: start: 20121205, end: 20121208
  3. CLEXANE [Concomitant]
     Dosage: UNK
     Dates: start: 20121205
  4. ALDOCUMAR [Concomitant]
     Dosage: UNK
     Dates: start: 20121207
  5. OMEPRAZOLE [Concomitant]
     Dosage: UNK
  6. SERC [Concomitant]
     Dosage: UNK

REACTIONS (2)
  - Drug interaction [Unknown]
  - Sinus bradycardia [Recovered/Resolved]
